FAERS Safety Report 8552876 (Version 3)
Quarter: 2012Q4

REPORT INFORMATION
  Report Type: 
  Country: US (occurrence: US)
  Receive Date: 20120508
  Receipt Date: 20121102
  Transmission Date: 20130627
  Serious: Yes (Hospitalization, Other)
  Sender: FDA-Public Use
  Company Number: US-ELI_LILLY_AND_COMPANY-US201204009553

PATIENT
  Age: 68 Year
  Sex: Female

DRUGS (22)
  1. FORTEO [Suspect]
     Indication: OSTEOPOROSIS
     Dosage: 20 ug, qd
     Dates: start: 201202
  2. FORTEO [Suspect]
     Dosage: 20 ug, qd
  3. HYDROCHLOROTHIAZIDE [Concomitant]
     Dosage: UNK, unknown
  4. AMLODIPINE [Concomitant]
     Dosage: UNK
  5. PRAVASTATIN [Concomitant]
     Dosage: UNK
  6. OMEPRAZOLE [Concomitant]
     Dosage: UNK, unknown
  7. PREDNISONE [Concomitant]
     Dosage: 5 mg, unknown
  8. FOLIC ACID [Concomitant]
     Dosage: UNK, unknown
  9. HYDROCODONE [Concomitant]
     Dosage: UNK, unknown
  10. CIPROFLOXACIN [Concomitant]
     Dosage: UNK, unknown
  11. LEVOTHYROXINE [Concomitant]
     Dosage: UNK, unknown
  12. IPRATROPIUM BROMIDE [Concomitant]
     Dosage: UNK, unknown
  13. CALCIUM CITRATE [Concomitant]
     Dosage: UNK
  14. CALCIUM CARBONATE [Concomitant]
     Dosage: UNK, unknown
  15. FISH OIL [Concomitant]
     Dosage: UNK, unknown
  16. ASPIRIN [Concomitant]
     Dosage: 81 mg, unknown
  17. VITAMIN B12 [Concomitant]
     Dosage: UNK, unknown
  18. COLACE [Concomitant]
     Dosage: UNK, unknown
  19. SLOW FE [Concomitant]
     Dosage: UNK, unknown
  20. PROVENTIL HFA [Concomitant]
     Dosage: UNK, unknown
  21. LUNESTA [Concomitant]
     Dosage: 3 mg, unknown
  22. CETIRIZIN [Concomitant]
     Dosage: 10 mg, UNK

REACTIONS (5)
  - Myocardial infarction [Recovering/Resolving]
  - Nausea [Unknown]
  - Vomiting [Unknown]
  - Asthenia [Unknown]
  - Syncope [Unknown]
